FAERS Safety Report 4696325-5 (Version None)
Quarter: 2005Q2

REPORT INFORMATION
  Report Type: 
  Country: None (occurrence: None)
  Receive Date: 20050620
  Receipt Date: 20050606
  Transmission Date: 20051028
  Serious: Yes (Hospitalization, Other)
  Sender: FDA-Public Use
  Company Number: 2005025846

PATIENT
  Sex: Female

DRUGS (2)
  1. BEXTRA [Suspect]
     Indication: TENDONITIS
     Dosage: 10 MG (10 MG, 1 IN 1 D)
     Dates: start: 20020729, end: 20040908
  2. ALL OTHER NON-THERAPEUTIC PRODUCTS (ALL OTHER NON-THERAPEUTIC PRODUCTS [Suspect]
     Indication: ILL-DEFINED DISORDER

REACTIONS (4)
  - CAROTID ARTERY STENOSIS [None]
  - CAROTID BRUIT [None]
  - THROMBOSIS [None]
  - VENOUS STENOSIS [None]
